FAERS Safety Report 4407071-7 (Version None)
Quarter: 2004Q3

REPORT INFORMATION
  Report Type: 
  Country: None (occurrence: None)
  Receive Date: 20040723
  Receipt Date: 20040723
  Transmission Date: 20050211
  Serious: Yes (Other)
  Sender: FDA-Public Use
  Company Number: None

PATIENT
  Sex: Male
  Weight: 53.5244 kg

DRUGS (1)
  1. RIBASPHERE [Suspect]
     Dosage: 200 MG BID
     Dates: start: 20040715, end: 20040719

REACTIONS (3)
  - MALAISE [None]
  - NAUSEA [None]
  - PHARMACEUTICAL PRODUCT COMPLAINT [None]
